FAERS Safety Report 5396141-5 (Version None)
Quarter: 2007Q3

REPORT INFORMATION
  Report Type: 
  Country: None (occurrence: None)
  Receive Date: 20070725
  Receipt Date: 20070717
  Transmission Date: 20080115
  Serious: Yes (Hospitalization, Other)
  Sender: FDA-Public Use
  Company Number: PHEH2007US10033

PATIENT
  Age: 29 Year
  Sex: Male

DRUGS (1)
  1. GLEEVEC [Suspect]
     Indication: CHRONIC MYELOID LEUKAEMIA
     Dosage: 400 MG, QD
     Route: 048
     Dates: start: 20070601, end: 20070710

REACTIONS (8)
  - DIPLOPIA [None]
  - EYELID PTOSIS [None]
  - IIIRD NERVE PARALYSIS [None]
  - MASTICATION DISORDER [None]
  - MUSCULAR WEAKNESS [None]
  - MYASTHENIA GRAVIS [None]
  - TRIGEMINAL PALSY [None]
  - VIITH NERVE PARALYSIS [None]
